FAERS Safety Report 9145483 (Version 1)
Quarter: 2013Q1

REPORT INFORMATION
  Report Type: Not Available
  Country: AU (occurrence: AU)
  Receive Date: 20130307
  Receipt Date: 20130307
  Transmission Date: 20140127
  Serious: Yes (Other)
  Sender: FDA-Public Use
  Company Number: AU-PURDUE-USA-2013-0099465

PATIENT
  Age: 51 Year
  Sex: Female

DRUGS (1)
  1. OXYCODONE HCL IMMEDIATE RELEASE (91-490) [Suspect]
     Indication: PAIN
     Dosage: 5 MG, SEE TEXT
     Route: 048
     Dates: start: 20120716, end: 20120716

REACTIONS (9)
  - Unresponsive to stimuli [Recovered/Resolved]
  - Tonic convulsion [Recovered/Resolved]
  - Incontinence [Recovered/Resolved]
  - Eye movement disorder [Recovered/Resolved]
  - Muscle spasms [Recovered/Resolved]
  - Headache [Recovered/Resolved]
  - Vomiting [Recovered/Resolved]
  - Hyperhidrosis [Recovered/Resolved]
  - Nausea [Recovered/Resolved]
